FAERS Safety Report 5564289-8 (Version None)
Quarter: 2007Q4

REPORT INFORMATION
  Report Type: 
  Country: None (occurrence: None)
  Receive Date: 20071214
  Receipt Date: 20071214
  Transmission Date: 20080405
  Serious: Yes (Life-Threatening, Hospitalization)
  Sender: FDA-Public Use
  Company Number: None

PATIENT
  Age: 64 Year
  Sex: Male

DRUGS (1)
  1. WARFARIN SODIUM [Suspect]
     Indication: ATRIAL FIBRILLATION
     Dosage: 6MG EVERY DAY PO
     Route: 048
     Dates: start: 20060608, end: 20071212

REACTIONS (4)
  - BRAIN STEM HAEMORRHAGE [None]
  - COAGULOPATHY [None]
  - POLYDIPSIA [None]
  - SPINAL CORD HAEMORRHAGE [None]
